FAERS Safety Report 23163567 (Version 1)
Quarter: 2023Q4

REPORT INFORMATION
  Report Type: Spontaneous
  Country: FR (occurrence: FR)
  Receive Date: 20231109
  Receipt Date: 20231109
  Transmission Date: 20240109
  Serious: Yes (Hospitalization, Other)
  Sender: FDA-Public Use
  Company Number: FR-MLMSERVICE-20231027-4627733-1

PATIENT
  Age: 20 Year
  Sex: Female

DRUGS (2)
  1. CYANOCOBALAMIN [Interacting]
     Active Substance: CYANOCOBALAMIN
     Indication: Product used for unknown indication
  2. NITROUS OXIDE [Interacting]
     Active Substance: NITROUS OXIDE
     Indication: Substance use
     Dosage: EQUIVALENT TO 200 BALLOONS
     Route: 055

REACTIONS (7)
  - Gait disturbance [Unknown]
  - Self-medication [Unknown]
  - Balance disorder [Unknown]
  - Drug interaction [Unknown]
  - Axonal neuropathy [Unknown]
  - Myelitis [Unknown]
  - Drug abuse [Unknown]
